FAERS Safety Report 5504316-7 (Version None)
Quarter: 2007Q4

REPORT INFORMATION
  Report Type: 
  Country: None (occurrence: None)
  Receive Date: 20071101
  Receipt Date: 20071029
  Transmission Date: 20080405
  Serious: Yes (Hospitalization)
  Sender: FDA-Public Use
  Company Number: GB-SHR-GB-2007-022241

PATIENT
  Age: 52 Year
  Sex: Male

DRUGS (1)
  1. ULTRAVIST 300 [Suspect]
     Dosage: UNK, 1 DOSE
     Route: 042
     Dates: start: 20070216, end: 20070216

REACTIONS (4)
  - CONTRAST MEDIA REACTION [None]
  - COUGH [None]
  - PRURITUS [None]
  - SNEEZING [None]
